FAERS Safety Report 10412615 (Version 1)
Quarter: 2014Q2

REPORT INFORMATION
  Report Type: Spontaneous
  Country: US (occurrence: None)
  Receive Date: 20140604
  Receipt Date: 20140604
  Transmission Date: 20141212
  Serious: Yes (Disabling)
  Sender: FDA-Public Use
  Company Number: 163-POMAL-14023004

PATIENT
  Age: 71 Year
  Sex: Female
  Weight: 75.75 kg

DRUGS (16)
  1. POMALYST (POMALIDOMIDE) [Suspect]
     Indication: PLASMA CELL MYELOMA
     Dates: start: 20130326, end: 20131230
  2. ACYCLOVIR (ACICLOVIR) [Concomitant]
  3. ASPIRINE (ACETYLSALICYLIC ACID) [Concomitant]
  4. CENTRUM SILVER (CENTRUM SILVER) [Concomitant]
  5. CLARINEX (DESLORATADINE) [Concomitant]
  6. COLACE (DOCUSATE SODIUM) [Concomitant]
  7. EMLA (EMLA) [Concomitant]
  8. LEVOTHYROXINE (LEVOTHYROXINE) [Concomitant]
  9. OXYCODONE/ACETAMINOPHEN (OXYCOCET) [Concomitant]
  10. PROCHLORPERAZINE MALEATE (PROCHLORPERAZINE MALEATE) [Concomitant]
  11. THERA TEARS (CARMELLOSE) [Concomitant]
  12. TYLENOL EXTRA STRENGTH (PARACETAMOL) [Concomitant]
  13. VITAMIN D3 (COLECALCIFEROL) [Concomitant]
  14. VYTORIN (INEGY) [Concomitant]
  15. DOXIL (DOXORUBICINE HYDROCHLORIDE) [Concomitant]
  16. AMBIEN (ZOLPIDEM TARTRATE) [Concomitant]

REACTIONS (1)
  - Plasma cell myeloma [None]
